FAERS Safety Report 12216180 (Version 1)
Quarter: 2016Q1

REPORT INFORMATION
  Report Type: Spontaneous
  Country: US (occurrence: US)
  Receive Date: 20160329
  Receipt Date: 20160329
  Transmission Date: 20160526
  Serious: Yes (Hospitalization)
  Sender: FDA-Public Use
  Company Number: US-BEH-2016060428

PATIENT
  Age: 30 Year
  Sex: Female
  Weight: 65 kg

DRUGS (23)
  1. ACETAMINOPHEN. [Concomitant]
     Active Substance: ACETAMINOPHEN
  2. RESTASIS [Concomitant]
     Active Substance: CYCLOSPORINE
  3. HIPREX [Concomitant]
     Active Substance: METHENAMINE HIPPURATE
  4. CALCIUM [Concomitant]
     Active Substance: CALCIUM
  5. TRAZODONE [Concomitant]
     Active Substance: TRAZODONE HYDROCHLORIDE
  6. MULTIVITAMINS [Concomitant]
     Active Substance: VITAMINS
  7. HIZENTRA [Suspect]
     Active Substance: HUMAN IMMUNOGLOBULIN G
     Route: 058
     Dates: start: 20120116
  8. AMITRIPTYLINE [Concomitant]
     Active Substance: AMITRIPTYLINE
  9. NEXIUM [Concomitant]
     Active Substance: ESOMEPRAZOLE MAGNESIUM
  10. EPIPEN [Concomitant]
     Active Substance: EPINEPHRINE
  11. SOMA [Concomitant]
     Active Substance: CARISOPRODOL
  12. KEPPRA [Concomitant]
     Active Substance: LEVETIRACETAM
  13. LYRICA [Concomitant]
     Active Substance: PREGABALIN
  14. HIZENTRA [Suspect]
     Active Substance: HUMAN IMMUNOGLOBULIN G
     Indication: CONGENITAL HYPOGAMMAGLOBULINAEMIA
     Route: 058
     Dates: start: 20120116
  15. DIPHENHYDRAMINE. [Concomitant]
     Active Substance: DIPHENHYDRAMINE
  16. NEURONTIN [Concomitant]
     Active Substance: GABAPENTIN
  17. BACLOFEN. [Concomitant]
     Active Substance: BACLOFEN
  18. DITROPAN [Concomitant]
     Active Substance: OXYBUTYNIN CHLORIDE
  19. LIDOCAINE/PRILOCAINE [Concomitant]
  20. REGLAN [Concomitant]
     Active Substance: METOCLOPRAMIDE HYDROCHLORIDE
  21. TRIMETHOPRIM. [Concomitant]
     Active Substance: TRIMETHOPRIM
  22. PRAVACHOL [Concomitant]
     Active Substance: PRAVASTATIN SODIUM
  23. FOSAMAX [Concomitant]
     Active Substance: ALENDRONATE SODIUM

REACTIONS (1)
  - Femur fracture [Unknown]

NARRATIVE: CASE EVENT DATE: 20160208
